FAERS Safety Report 17583426 (Version 2)
Quarter: 2020Q2

REPORT INFORMATION
  Report Type: Report from Study
  Country: US (occurrence: US)
  Receive Date: 20200326
  Receipt Date: 20200627
  Transmission Date: 20200713
  Serious: Yes (Other)
  Sender: FDA-Public Use
  Company Number: US-UCBSA-2020003634

PATIENT
  Age: 45 Year
  Sex: Male

DRUGS (1)
  1. CERTOLIZUMAB PEGOL [Suspect]
     Active Substance: CERTOLIZUMAB PEGOL
     Indication: CROHN^S DISEASE
     Dosage: 400 MILLIGRAM, EV 2 WEEKS(QOW)
     Dates: start: 20180405, end: 20200303

REACTIONS (3)
  - Abscess [Not Recovered/Not Resolved]
  - Infection [Not Recovered/Not Resolved]
  - Tuberculosis [Not Recovered/Not Resolved]

NARRATIVE: CASE EVENT DATE: 20200111
